FAERS Safety Report 15948430 (Version 1)
Quarter: 2019Q1

REPORT INFORMATION
  Report Type: Spontaneous
  Country: US (occurrence: US)
  Receive Date: 20190211
  Receipt Date: 20190211
  Transmission Date: 20190417
  Serious: No
  Sender: FDA-Public Use
  Company Number: US-SUNOVION-2019SUN000344

PATIENT
  Sex: Female

DRUGS (1)
  1. LATUDA [Suspect]
     Active Substance: LURASIDONE HYDROCHLORIDE
     Indication: SCHIZOPHRENIA
     Dosage: 20 MG
     Route: 048
     Dates: start: 20190129

REACTIONS (11)
  - Hallucination, auditory [Unknown]
  - Movement disorder [Unknown]
  - Psychomotor hyperactivity [Unknown]
  - Headache [Unknown]
  - Diarrhoea [Unknown]
  - Abdominal pain upper [Unknown]
  - Tremor [Unknown]
  - Hair growth abnormal [Unknown]
  - Insomnia [Unknown]
  - Malaise [Unknown]
  - Vomiting [Unknown]
